FAERS Safety Report 7237813-7 (Version None)
Quarter: 2011Q1

REPORT INFORMATION
  Report Type: 
  Country: None (occurrence: None)
  Receive Date: 20110119
  Receipt Date: 20110119
  Transmission Date: 20110831
  Serious: No
  Sender: FDA-Public Use
  Company Number: None

PATIENT
  Sex: Male
  Weight: 113.3993 kg

DRUGS (1)
  1. PLAVIX [Suspect]
     Indication: TRANSIENT ISCHAEMIC ATTACK
     Dosage: 75 MG. 1 A DAY
     Dates: start: 20101125, end: 20101212

REACTIONS (5)
  - SKIN ODOUR ABNORMAL [None]
  - CHEST PAIN [None]
  - FEELING ABNORMAL [None]
  - BACK PAIN [None]
  - REFUSAL OF TREATMENT BY PATIENT [None]
